FAERS Safety Report 11147307 (Version 1)
Quarter: 2015Q2

REPORT INFORMATION
  Report Type: Spontaneous
  Country: FR (occurrence: FR)
  Receive Date: 20150528
  Receipt Date: 20150528
  Transmission Date: 20150821
  Serious: Yes (Hospitalization)
  Sender: FDA-Public Use
  Company Number: FR-SA-2015SA070776

PATIENT
  Age: 87 Year
  Sex: Female

DRUGS (7)
  1. AMLOR [Concomitant]
     Active Substance: AMLODIPINE BESYLATE
     Dosage: 5 MG ARW CAPSULE, 1 CAPSULE IN THE EVENING
     Route: 048
  2. KEPPRA [Concomitant]
     Active Substance: LEVETIRACETAM
     Dosage: 500 MG TABLET MYLAN, 1 TABLET IN THE MORNING, AFTERNOON AND EVENING
     Route: 048
  3. LASILIX [Concomitant]
     Active Substance: FUROSEMIDE
     Dosage: 40 MG TABLET , IN THE MORNING AND AFTERNOON
     Route: 048
  4. COVERSYL [Concomitant]
     Active Substance: PERINDOPRIL
     Dosage: 4 MG ARROW TABLET, 2 TABLETS IN THE MORNING
     Route: 048
  5. PLAVIX [Suspect]
     Active Substance: CLOPIDOGREL BISULFATE
     Indication: ISCHAEMIC STROKE
     Route: 048
     Dates: start: 2011, end: 20150321
  6. KARDEGIC [Suspect]
     Active Substance: ASPIRIN LYSINE
     Indication: ISCHAEMIC STROKE
     Route: 048
     Dates: start: 2013, end: 20150321
  7. TAHOR [Concomitant]
     Active Substance: ATORVASTATIN CALCIUM
     Dosage: 40 MG TABLET, 1 TABLET IN THE EVENING
     Route: 048

REACTIONS (6)
  - Haematemesis [Recovered/Resolved with Sequelae]
  - Faeces discoloured [Recovered/Resolved with Sequelae]
  - Dyspnoea [Recovered/Resolved]
  - Gastrointestinal haemorrhage [Recovered/Resolved with Sequelae]
  - Anaemia [Recovered/Resolved]
  - Gastric ulcer [Recovering/Resolving]

NARRATIVE: CASE EVENT DATE: 201503
